FAERS Safety Report 9628308 (Version 1)
Quarter: 2013Q4

REPORT INFORMATION
  Report Type: Spontaneous
  Country: US (occurrence: US)
  Receive Date: 20131017
  Receipt Date: 20131017
  Transmission Date: 20140711
  Serious: No
  Sender: FDA-Public Use
  Company Number: US-B.I. PHARMACEUTICALS,INC./RIDGEFIELD-2013-BI-31689BP

PATIENT
  Sex: Female
  Weight: 63 kg

DRUGS (3)
  1. COMBIVENT [Suspect]
     Indication: ASTHMA
     Dosage: STRENGTH: 18 MCG / 103 MCG;
     Route: 055
     Dates: start: 2005, end: 20131001
  2. VERAPAMIL ER [Concomitant]
     Indication: HYPERTENSION
     Dosage: 240 MG
     Route: 048
  3. VENLAFAXINE [Concomitant]
     Indication: HOT FLUSH
     Dosage: 37.5 MG
     Route: 048

REACTIONS (1)
  - Off label use [Recovered/Resolved]
